FAERS Safety Report 8581425-X (Version None)
Quarter: 2012Q2

REPORT INFORMATION
  Report Type: 
  Country: None (occurrence: None)
  Receive Date: 20120423
  Receipt Date: 20100526
  Transmission Date: 20120825
  Serious: Yes (Other)
  Sender: FDA-Public Use
  Company Number: PHHY2010US25232

PATIENT
  Age: 51 Year
  Sex: Female

DRUGS (1)
  1. EXJADE [Suspect]
     Indication: THALASSAEMIA BETA
     Dosage: 2000 MG, QD, ORAL, 500 MG, QD, 500 MG, QD
     Dates: start: 20100210

REACTIONS (5)
  - BLOOD CREATININE INCREASED [None]
  - LIVER FUNCTION TEST ABNORMAL [None]
  - RENAL DISORDER [None]
  - LIVER DISORDER [None]
  - MALAISE [None]
